FAERS Safety Report 26004155 (Version 3)
Quarter: 2025Q4

REPORT INFORMATION
  Report Type: Spontaneous
  Country: US (occurrence: US)
  Receive Date: 20251106
  Receipt Date: 20251230
  Transmission Date: 20260117
  Serious: No
  Sender: SANOFI AVENTIS
  Company Number: US-SA-2025SA323142

PATIENT
  Age: 79 Year
  Sex: Male

DRUGS (2)
  1. DUPIXENT [Suspect]
     Active Substance: DUPILUMAB
     Indication: Neurodermatitis
     Dosage: 300 MG, QOW
     Route: 058
  2. DUPIXENT [Suspect]
     Active Substance: DUPILUMAB
     Indication: Skin disorder

REACTIONS (6)
  - Injection site swelling [Recovered/Resolved]
  - Injection site pain [Unknown]
  - Injury associated with device [Unknown]
  - Injection site swelling [Unknown]
  - Accidental exposure to product [Unknown]
  - Exposure via skin contact [Unknown]
